FAERS Safety Report 20849287 (Version 1)
Quarter: 2022Q2

REPORT INFORMATION
  Report Type: Spontaneous
  Country: IT (occurrence: IT)
  Receive Date: 20220519
  Receipt Date: 20220519
  Transmission Date: 20220720
  Serious: Yes (Other)
  Sender: FDA-Public Use
  Company Number: IT-STADA-248099

PATIENT
  Age: 58 Year
  Sex: Female

DRUGS (6)
  1. VINCRISTINE SULFATE [Suspect]
     Active Substance: VINCRISTINE SULFATE
     Indication: Marginal zone lymphoma
     Dosage: R-CHOP REGIMEN 6 CYCLES, LAST THERAPY IN MAY 2007
     Route: 065
     Dates: end: 200705
  2. ADRIAMYCIN [Suspect]
     Active Substance: DOXORUBICIN HYDROCHLORIDE
     Indication: Marginal zone lymphoma
     Dosage: R-CHOP REGIMEN 6 CYCLES, LAST THERAPY IN MAY 2007
     Route: 065
     Dates: end: 200705
  3. RITUXIMAB [Suspect]
     Active Substance: RITUXIMAB
     Indication: Marginal zone lymphoma
     Dosage: R-CHOP REGIMEN 6 CYCLES, LAST THERAPY IN MAY 2007
     Dates: end: 200705
  4. RITUXIMAB [Suspect]
     Active Substance: RITUXIMAB
     Dosage: 375 MG/M2, MONTHLY (MAINTENANCE THERAPY)
     Route: 065
  5. CYCLOPHOSPHAMIDE [Suspect]
     Active Substance: CYCLOPHOSPHAMIDE
     Indication: Marginal zone lymphoma
     Dosage: R-CHOP REGIMEN 6 CYCLES, LAST THERAPY IN MAY 2007
     Route: 065
     Dates: end: 200705
  6. PREDNISOLONE [Suspect]
     Active Substance: PREDNISOLONE
     Indication: Marginal zone lymphoma
     Dosage: R-CHOP REGIMEN 6 CYCLES, LAST THERAPY IN MAY 2007
     Route: 065
     Dates: end: 200705

REACTIONS (1)
  - Pneumocystis jirovecii pneumonia [Recovered/Resolved]
